FAERS Safety Report 9605663 (Version 1)
Quarter: 2013Q4

REPORT INFORMATION
  Report Type: Report from Study
  Country: CO (occurrence: CO)
  Receive Date: 20131008
  Receipt Date: 20131008
  Transmission Date: 20140711
  Serious: Yes (Hospitalization)
  Sender: FDA-Public Use
  Company Number: CO-ABBVIE-13P-036-1155674-00

PATIENT
  Age: 41 Year
  Sex: Female
  Weight: 65 kg

DRUGS (1)
  1. HUMIRA [Suspect]
     Indication: PSORIASIS
     Dates: start: 20120120, end: 20130512

REACTIONS (4)
  - Malaise [Recovering/Resolving]
  - Pyelonephritis [Recovering/Resolving]
  - Abdominal pain lower [Recovering/Resolving]
  - Pyrexia [Recovering/Resolving]
